FAERS Safety Report 7834424-7 (Version None)
Quarter: 2011Q4

REPORT INFORMATION
  Report Type: 
  Country: None (occurrence: None)
  Receive Date: 20111024
  Receipt Date: 20111013
  Transmission Date: 20120403
  Serious: Yes (Hospitalization)
  Sender: FDA-Public Use
  Company Number: US-ELI_LILLY_AND_COMPANY-US201110004724

PATIENT
  Sex: Female

DRUGS (3)
  1. HUMULIN N [Suspect]
     Dosage: 15 U, EACH EVENING
     Dates: start: 20090101
  2. HUMULIN N [Suspect]
     Indication: DIABETES MELLITUS
     Dosage: 16 U, EACH MORNING
     Dates: start: 20090101
  3. HUMALOG [Suspect]
     Indication: DIABETES MELLITUS
     Dosage: UNK, PRN
     Dates: start: 19970101

REACTIONS (3)
  - DIABETIC KETOACIDOSIS [None]
  - BLOOD GLUCOSE INCREASED [None]
  - DRUG INEFFECTIVE [None]
